FAERS Safety Report 9992110 (Version 1)
Quarter: 2014Q1

REPORT INFORMATION
  Report Type: Spontaneous
  Country: US (occurrence: None)
  Receive Date: 20140207
  Receipt Date: 20140207
  Transmission Date: 20141002
  Serious: Yes (Other)
  Sender: FDA-Public Use
  Company Number: ALL1-2013-07091

PATIENT
  Age: 32 Year
  Sex: Female

DRUGS (3)
  1. FIRAZYR [Suspect]
     Indication: HEREDITARY ANGIOEDEMA
     Route: 058
  2. CINRYZE [Suspect]
     Indication: HEREDITARY ANGIOEDEMA
     Dosage: 1000 IU, OTHER (3 TIMES A WEEK) INTRAVENOUS
     Route: 042
     Dates: start: 20100330
  3. CINRYZE [Suspect]
     Indication: PROPHYLAXIS
     Dosage: 1000 IU, OTHER (3 TIMES A WEEK) INTRAVENOUS
     Route: 042
     Dates: start: 20100330

REACTIONS (1)
  - Drug ineffective [None]
